FAERS Safety Report 7927247-1 (Version None)
Quarter: 2011Q4

REPORT INFORMATION
  Report Type: 
  Country: None (occurrence: None)
  Receive Date: 20111117
  Receipt Date: 20111117
  Transmission Date: 20120403
  Serious: No
  Sender: FDA-Public Use
  Company Number: None

PATIENT
  Age: 45 Year
  Sex: Female

DRUGS (1)
  1. ISONIAZID [Suspect]
     Dates: start: 20080226, end: 20080529

REACTIONS (3)
  - ACUTE HEPATIC FAILURE [None]
  - TOXICITY TO VARIOUS AGENTS [None]
  - LIVER TRANSPLANT [None]
